FAERS Safety Report 7296806-4 (Version None)
Quarter: 2011Q1

REPORT INFORMATION
  Report Type: 
  Country: None (occurrence: None)
  Receive Date: 20110216
  Receipt Date: 20110210
  Transmission Date: 20110831
  Serious: Yes (Hospitalization)
  Sender: FDA-Public Use
  Company Number: B0700246A

PATIENT
  Sex: Male

DRUGS (4)
  1. CLENIL [Concomitant]
     Indication: ASTHMA
     Route: 065
  2. BISOLVON [Concomitant]
     Indication: COUGH
     Route: 048
  3. BRONCOVALEAS [Concomitant]
     Indication: ASTHMA
     Route: 065
  4. AMOXICILLIN AND CLAVULANATE POTASSIUM [Suspect]
     Indication: PYREXIA
     Dosage: 1G PER DAY
     Route: 048
     Dates: start: 20110207, end: 20110207

REACTIONS (5)
  - DYSPNOEA [None]
  - PRURITUS [None]
  - HYPERTENSION [None]
  - ERYTHEMA [None]
  - TACHYCARDIA [None]
